FAERS Safety Report 24601923 (Version 2)
Quarter: 2025Q2

REPORT INFORMATION
  Report Type: Spontaneous
  Country: MY (occurrence: MY)
  Receive Date: 20241111
  Receipt Date: 20250410
  Transmission Date: 20250716
  Serious: Yes (Other)
  Sender: ALEXION PHARMACEUTICALS
  Company Number: MY-ASTRAZENECA-202410ASI021778MY

PATIENT
  Age: 45 Year

DRUGS (3)
  1. FASLODEX [Suspect]
     Active Substance: FULVESTRANT
  2. FASLODEX [Suspect]
     Active Substance: FULVESTRANT
  3. NOLVADEX [Suspect]
     Active Substance: TAMOXIFEN CITRATE

REACTIONS (4)
  - Breast cancer recurrent [Unknown]
  - Malignant neoplasm progression [Unknown]
  - Tumour ulceration [Unknown]
  - Breast cancer metastatic [Unknown]
